FAERS Safety Report 24382363 (Version 5)
Quarter: 2025Q1

REPORT INFORMATION
  Report Type: Spontaneous
  Country: FR (occurrence: FR)
  Receive Date: 20241001
  Receipt Date: 20250130
  Transmission Date: 20250409
  Serious: Yes (Other)
  Sender: ROCHE
  Company Number: FR-ROCHE-10000091454

PATIENT
  Age: 71 Year
  Sex: Female

DRUGS (2)
  1. MABTHERA [Suspect]
     Active Substance: RITUXIMAB
     Indication: Cold type haemolytic anaemia
     Route: 058
     Dates: start: 20231204, end: 20240422
  2. MABTHERA [Suspect]
     Active Substance: RITUXIMAB
     Route: 040
     Dates: start: 20231204, end: 20240422

REACTIONS (10)
  - Off label use [Unknown]
  - Ear infection [Unknown]
  - Sinusitis [Unknown]
  - Deafness [Unknown]
  - Erythema [Unknown]
  - Rash [Unknown]
  - Oral mucosal eruption [Unknown]
  - Tympanic membrane perforation [Not Recovered/Not Resolved]
  - Musculoskeletal stiffness [Not Recovered/Not Resolved]
  - Acne [Not Recovered/Not Resolved]
